FAERS Safety Report 23290181 (Version 2)
Quarter: 2023Q4

REPORT INFORMATION
  Report Type: Report from Study
  Country: GB (occurrence: GB)
  Receive Date: 20231213
  Receipt Date: 20231215
  Transmission Date: 20240110
  Serious: No
  Sender: FDA-Public Use
  Company Number: GB-ABBVIE-5530959

PATIENT
  Age: 73 Year
  Sex: Male

DRUGS (3)
  1. CARBIDOPA\LEVODOPA [Suspect]
     Active Substance: CARBIDOPA\LEVODOPA
     Indication: Parkinson^s disease
     Dosage: MD:13.0 CR: 3.0  ED: 1.2
     Route: 050
     Dates: start: 20231204, end: 20231205
  2. CARBIDOPA\LEVODOPA [Suspect]
     Active Substance: CARBIDOPA\LEVODOPA
     Dosage: MD:13.0 CR: 2.7  ED: 1.2
     Route: 050
     Dates: start: 20231205
  3. Co Beneldopa [Concomitant]
     Indication: Product used for unknown indication
     Dosage: 25/100MG?CR?FREQUENCY TEXT: 2300, 0300

REACTIONS (1)
  - Pyrexia [Unknown]

NARRATIVE: CASE EVENT DATE: 20231204
